FAERS Safety Report 4894505-7 (Version None)
Quarter: 2006Q1

REPORT INFORMATION
  Report Type: 
  Country: None (occurrence: None)
  Receive Date: 20060127
  Receipt Date: 20040109
  Transmission Date: 20060701
  Serious: Yes (Other)
  Sender: FDA-Public Use
  Company Number: US-JNJFOC-20041101737

PATIENT
  Sex: Female

DRUGS (1)
  1. FAST ACTING MYLANTA ORIGINAL [Suspect]
     Dosage: 3-4 TSPS, 3-5 TIMES QD
     Route: 048

REACTIONS (4)
  - ABORTION SPONTANEOUS [None]
  - DIARRHOEA [None]
  - DRUG EXPOSURE DURING PREGNANCY [None]
  - OVERDOSE [None]
